FAERS Safety Report 7649006-X (Version None)
Quarter: 2011Q3

REPORT INFORMATION
  Report Type: 
  Country: None (occurrence: None)
  Receive Date: 20110802
  Receipt Date: 20110726
  Transmission Date: 20111222
  Serious: Yes (Hospitalization)
  Sender: FDA-Public Use
  Company Number: US-BIOGENIDEC-2011BI027671

PATIENT
  Age: 46 Year
  Sex: Female

DRUGS (1)
  1. AVONEX [Suspect]
     Indication: MULTIPLE SCLEROSIS
     Route: 030
     Dates: start: 20070201, end: 20110101

REACTIONS (4)
  - LOSS OF CONTROL OF LEGS [None]
  - PNEUMONIA [None]
  - MUSCULAR WEAKNESS [None]
  - BLADDER PROLAPSE [None]
